FAERS Safety Report 7735548-5 (Version None)
Quarter: 2011Q3

REPORT INFORMATION
  Report Type: 
  Country: None (occurrence: None)
  Receive Date: 20110907
  Receipt Date: 20110823
  Transmission Date: 20111222
  Serious: Yes (Hospitalization)
  Sender: FDA-Public Use
  Company Number: ES-WATSON-2011-12298

PATIENT
  Age: 70 Year
  Sex: Male

DRUGS (3)
  1. OMEPRAZOLE [Suspect]
     Dosage: 20- 40 MG, DAILY OCCASIONALLY
     Dates: start: 19980101, end: 20020101
  2. OMEPRAZOLE [Suspect]
     Indication: PRODUCT USED FOR UNKNOWN INDICATION
     Dosage: 20 MG, DAILY CONTINUOUS
     Dates: start: 20090201
  3. OMEPRAZOLE [Suspect]
     Dosage: 20-40 MG, DAILY CONTINUOUS
     Dates: start: 20020101, end: 20080101

REACTIONS (2)
  - HYPOCALCAEMIA [None]
  - HYPOMAGNESAEMIA [None]
